FAERS Safety Report 4909215-7 (Version None)
Quarter: 2006Q1

REPORT INFORMATION
  Report Type: 
  Country: None (occurrence: None)
  Receive Date: 20060210
  Receipt Date: 20060210
  Transmission Date: 20060701
  Serious: Yes (Death, Other)
  Sender: FDA-Public Use
  Company Number: None

PATIENT
  Age: 50 Year
  Sex: Male
  Weight: 90.7194 kg

DRUGS (2)
  1. EFFEXOR [Suspect]
     Indication: ANGER
     Dosage: PO
     Route: 048
     Dates: start: 20050601, end: 20060111
  2. EFFEXOR [Suspect]
     Indication: DEPRESSION
     Dosage: PO
     Route: 048
     Dates: start: 20050601, end: 20060111

REACTIONS (2)
  - CARDIAC ARREST [None]
  - GRAND MAL CONVULSION [None]
